FAERS Safety Report 12318406 (Version 2)
Quarter: 2016Q3

REPORT INFORMATION
  Report Type: Spontaneous
  Country: US (occurrence: US)
  Receive Date: 20160429
  Receipt Date: 20160728
  Transmission Date: 20161109
  Serious: No
  Sender: FDA-Public Use
  Company Number: US-PFIZER INC-2016197229

PATIENT
  Age: 71 Year
  Sex: Female
  Weight: 54.43 kg

DRUGS (9)
  1. LYRICA [Suspect]
     Active Substance: PREGABALIN
     Indication: POST HERPETIC NEURALGIA
     Dosage: 100 MG, 2X/DAY (50 MG, TWO CAPSULES BY MOUTH TWICE DAILY)
     Route: 048
     Dates: start: 201503
  2. SYNTHROID [Concomitant]
     Active Substance: LEVOTHYROXINE SODIUM
     Indication: THYROID DISORDER
     Dosage: 75 MG ONE DAY
  3. NORPACE [Concomitant]
     Active Substance: DISOPYRAMIDE PHOSPHATE
     Indication: HYPERTENSION
     Dosage: 100 MG TWO TIMES A DAY
     Dates: start: 2008
  4. VITAMIN D [Concomitant]
     Active Substance: CHOLECALCIFEROL
     Indication: VITAMIN D DEFICIENCY
     Dosage: 50000 IU, MONTHLY
     Dates: start: 2009
  5. LYRICA [Suspect]
     Active Substance: PREGABALIN
     Dosage: 100 MG, 2X/DAY (50 MG, 2 CAPSULES TWICE DAILY)
     Route: 048
     Dates: start: 201504, end: 201606
  6. NORVASC [Concomitant]
     Active Substance: AMLODIPINE BESYLATE
     Indication: ARRHYTHMIA
     Dosage: 5 MG, 1X/DAY
     Dates: start: 2008
  7. ESTRADIOL. [Concomitant]
     Active Substance: ESTRADIOL
     Dosage: 0.5 MG, 1X/DAY
     Dates: start: 2008
  8. SYNTHROID [Concomitant]
     Active Substance: LEVOTHYROXINE SODIUM
     Dosage: ALTERNATES BETWEEN 75 MG AND 88 MG
     Dates: start: 2009
  9. SYNTHROID [Concomitant]
     Active Substance: LEVOTHYROXINE SODIUM
     Dosage: 88 MG, DAILY

REACTIONS (4)
  - Drug ineffective [Not Recovered/Not Resolved]
  - Hyperaesthesia [Recovered/Resolved]
  - Fatigue [Not Recovered/Not Resolved]
  - Vitamin D deficiency [Not Recovered/Not Resolved]

NARRATIVE: CASE EVENT DATE: 201504
